FAERS Safety Report 21246188 (Version 4)
Quarter: 2022Q4

REPORT INFORMATION
  Report Type: Report from Study
  Country: US (occurrence: None)
  Receive Date: 20220824
  Receipt Date: 20221219
  Transmission Date: 20230113
  Serious: Yes (Other)
  Sender: FDA-Public Use
  Company Number: US-ROCHE-2993688

PATIENT
  Age: 74 Year
  Sex: Female
  Weight: 80.5 kg

DRUGS (26)
  1. RANIBIZUMAB [Suspect]
     Active Substance: RANIBIZUMAB
     Indication: Neovascular age-related macular degeneration
     Dosage: DRUG DOSE FIRST ADMINISTERED IS 100 MG/ML?DOSE LAST STUDY DRUG ADMIN PRIOR AE IS 100 MG/ML: 14/JUL/2
     Route: 050
     Dates: start: 20210127
  2. RANIBIZUMAB [Suspect]
     Active Substance: RANIBIZUMAB
  3. RANIBIZUMAB [Suspect]
     Active Substance: RANIBIZUMAB
  4. RANIBIZUMAB [Suspect]
     Active Substance: RANIBIZUMAB
  5. RANIBIZUMAB [Suspect]
     Active Substance: RANIBIZUMAB
  6. MYRBETRIQ [Concomitant]
     Active Substance: MIRABEGRON
     Indication: Hypertonic bladder
  7. CETIRIZINE [Concomitant]
     Active Substance: CETIRIZINE HYDROCHLORIDE
     Indication: Rhinitis allergic
  8. ATENOLOL [Concomitant]
     Active Substance: ATENOLOL
     Indication: Headache
  9. BIOTIN [Concomitant]
     Active Substance: BIOTIN
  10. CALCIUM [Concomitant]
     Active Substance: CALCIUM
     Indication: Osteoporosis postmenopausal
  11. FOLIC ACID [Concomitant]
     Active Substance: FOLIC ACID
  12. MAGNESIUM [Concomitant]
     Active Substance: MAGNESIUM
  13. POTASSIUM [Concomitant]
     Active Substance: POTASSIUM
  14. ASPIRIN [Concomitant]
     Active Substance: ASPIRIN
     Dosage: GIVEN FOR PROPHYLAXIS IS YES ;
     Dates: start: 20190403
  15. MOMETASONE [Concomitant]
     Active Substance: MOMETASONE
     Indication: Lip blister
     Dosage: GIVEN FOR PROPHYLAXIS IS NO
     Dates: start: 20200107
  16. MUPIROCIN [Concomitant]
     Active Substance: MUPIROCIN
     Indication: Lip blister
     Dosage: GIVEN FOR PROPHYLAXIS IS NO
     Dates: start: 20190812
  17. CLINDAMYCIN [Concomitant]
     Active Substance: CLINDAMYCIN
     Indication: Tooth abscess
     Dosage: GIVEN FOR PROPHYLAXIS IS NO
     Dates: start: 20211026
  18. HYDROCODONE [Concomitant]
     Active Substance: HYDROCODONE
     Indication: Tooth abscess
     Dosage: GIVEN FOR PROPHYLAXIS IS NO
     Dates: start: 20211026
  19. CRESTOR [Concomitant]
     Active Substance: ROSUVASTATIN CALCIUM
     Indication: Hypercholesterolaemia
     Dosage: GIVEN FOR PROPHYLAXIS IS NO ;ONGOING: YES
     Dates: start: 20211013
  20. VITAMIN B12 [Concomitant]
     Active Substance: CYANOCOBALAMIN
  21. MELOXICAM [Concomitant]
     Active Substance: MELOXICAM
     Indication: Arthralgia
     Dates: start: 20220203
  22. ROOSTER COMB INJECTION [Concomitant]
     Indication: Arthralgia
     Dates: start: 20220202, end: 20220202
  23. ROOSTER COMB INJECTION [Concomitant]
     Dates: start: 20220503, end: 20220503
  24. ROOSTER COMB INJECTION [Concomitant]
     Dates: start: 20220809, end: 20220809
  25. ROOSTER COMB INJECTION [Concomitant]
     Dates: start: 20221110, end: 20221110
  26. RANIBIZUMAB [Concomitant]
     Active Substance: RANIBIZUMAB
     Dosage: DRUG DOSE FIRST ADMINISTERED IS 10 MG/ML?DOSE LAST STUDY DRUG ADMIN PRIOR AE IS 10 MG/ML ?RANIBIZUMA
     Route: 050
     Dates: start: 20210224

REACTIONS (2)
  - Subconjunctival injection procedure [Not Recovered/Not Resolved]
  - Conjunctival bleb [Unknown]

NARRATIVE: CASE EVENT DATE: 20211229
